FAERS Safety Report 20799479 (Version 1)
Quarter: 2022Q2

REPORT INFORMATION
  Report Type: Spontaneous
  Country: IT (occurrence: None)
  Receive Date: 20220508
  Receipt Date: 20220508
  Transmission Date: 20220721
  Serious: No
  Sender: FDA-Public Use
  Company Number: IT-ROCHE-3090238

PATIENT
  Sex: Female
  Weight: 60 kg

DRUGS (1)
  1. OCREVUS [Suspect]
     Active Substance: OCRELIZUMAB
     Indication: Multiple sclerosis
     Route: 065
     Dates: start: 20200722

REACTIONS (3)
  - Throat irritation [Unknown]
  - Herpes zoster [Unknown]
  - Oral herpes [Unknown]
